FAERS Safety Report 6328347-2 (Version None)
Quarter: 2009Q3

REPORT INFORMATION
  Report Type: 
  Country: None (occurrence: None)
  Receive Date: 20090825
  Receipt Date: 20090429
  Transmission Date: 20100115
  Serious: No
  Sender: FDA-Public Use
  Company Number: US-ABBOTT-09P-163-0570780-00

PATIENT
  Sex: Female
  Weight: 61.29 kg

DRUGS (1)
  1. SYNTHROID [Suspect]
     Indication: HYPOTHYROIDISM
     Route: 048
     Dates: start: 19910601

REACTIONS (3)
  - ABDOMINAL PAIN UPPER [None]
  - COELIAC DISEASE [None]
  - DIARRHOEA [None]
